FAERS Safety Report 10196518 (Version 1)
Quarter: 2014Q2

REPORT INFORMATION
  Report Type: Spontaneous
  Country: US (occurrence: None)
  Receive Date: 20140522
  Receipt Date: 20140522
  Transmission Date: 20141212
  Serious: Yes (Other)
  Sender: FDA-Public Use
  Company Number: AUR-APL-2014-05972

PATIENT
  Age: 23 Year
  Sex: Female

DRUGS (3)
  1. CEFTRIAXONE (CEFTRIAXONE) [Suspect]
     Indication: PRODUCT USED FOR UNKNOWN INDICATION
     Route: 042
  2. ZOSYN (PIP/TAZO) [Suspect]
     Indication: PRODUCT USED FOR UNKNOWN INDICATION
  3. AZITHROMYCIN [Suspect]
     Indication: PRODUCT USED FOR UNKNOWN INDICATION

REACTIONS (4)
  - Vaginal haemorrhage [None]
  - Abdominal pain lower [None]
  - Foetal death [None]
  - Exposure during pregnancy [None]
